FAERS Safety Report 9500499 (Version 2)
Quarter: 2013Q4

REPORT INFORMATION
  Report Type: Report from Study
  Country: SE (occurrence: SE)
  Receive Date: 20130905
  Receipt Date: 20131015
  Transmission Date: 20140711
  Serious: Yes (Death)
  Sender: FDA-Public Use
  Company Number: SE-ASTELLAS-2013EU007463

PATIENT
  Age: 64 Year
  Sex: Male
  Weight: 119 kg

DRUGS (11)
  1. CRESTOR [Concomitant]
     Indication: HYPERLIPIDAEMIA
     Dosage: 20 MG, UID/QD
     Route: 048
     Dates: start: 2006
  2. FLUOXETINE [Concomitant]
     Indication: DEPRESSION
     Dosage: 20 MG, UID/QD
     Route: 048
     Dates: start: 2010
  3. DETRUSITOL [Concomitant]
     Indication: HYPERTONIC BLADDER
     Dosage: 2 MG, UID/QD
     Route: 048
     Dates: start: 2010
  4. BOTOX [Concomitant]
     Indication: HYPERTONIC BLADDER
     Dosage: 200 U, PRN
     Route: 050
     Dates: start: 20100929
  5. TROMBYL [Concomitant]
     Indication: ATRIAL FIBRILLATION
     Dosage: 75 MG, UID/QD
     Route: 048
     Dates: start: 20120303
  6. ATACAND PLUS [Concomitant]
     Indication: HYPERTENSION
     Dosage: 25 MG, UID/QD
     Route: 048
     Dates: start: 201112
  7. SPIRONOLACTONE [Concomitant]
     Indication: HYPERTENSION
     Dosage: 50 MG, UID/QD
     Route: 048
     Dates: start: 20120828
  8. PHYSIOTENS [Concomitant]
     Indication: HYPERTENSION
     Dosage: 0.4 MG, UID/QD
     Route: 048
     Dates: start: 20121017
  9. PROCREN [Concomitant]
     Dosage: 30 MG, UNKNOWN/D
     Route: 058
     Dates: start: 20101126
  10. BLINDED ENZALUTAMIDE [Suspect]
     Indication: PROSTATE CANCER
     Dosage: 160 MG, UID/QD
     Route: 048
     Dates: start: 20110926, end: 20130728
  11. NORVASC [Concomitant]
     Indication: HYPERTENSION
     Dosage: 10 MG, UID/QD
     Route: 048
     Dates: start: 2007

REACTIONS (1)
  - Circulatory collapse [Fatal]
